FAERS Safety Report 9672382 (Version 1)
Quarter: 2013Q4

REPORT INFORMATION
  Report Type: Spontaneous
  Country: FR (occurrence: None)
  Receive Date: 20131105
  Receipt Date: 20131105
  Transmission Date: 20140711
  Serious: Yes (Hospitalization)
  Sender: FDA-Public Use
  Company Number: SYM-2013-12208

PATIENT
  Age: 61 Year
  Sex: Male

DRUGS (7)
  1. FLAGYL [Suspect]
     Indication: PYREXIA
     Dosage: 500 MG, 3 IN 1 D, ORAL
     Route: 048
     Dates: start: 20130918, end: 20130918
  2. TAVANIC [Suspect]
     Indication: PRODUCT USED FOR UNKNOWN INDICATION
     Dosage: ORAL
     Route: 048
     Dates: start: 20130919
  3. ROCEPHINE [Suspect]
     Indication: PYREXIA
     Dosage: 1 GM, DAILY, INTRAVENOUS (NOT OTHERWISE SPECIFIED)
     Route: 042
     Dates: start: 20130918, end: 20130918
  4. PLAQUENIL (HYDROXYCHLOROQUINE SULFATE) (HYDROXYCHLOROQUINE SULFATE) [Concomitant]
  5. REMICADE (INFLIXIMAB) (INFLIXIMAB) [Concomitant]
  6. LOVENOX (ENOXAPARIN SODIUM) (ENOXAPARIN SODIUM) [Concomitant]
  7. PERFALGAN [Concomitant]

REACTIONS (2)
  - Urticaria papular [None]
  - C-reactive protein increased [None]
